FAERS Safety Report 23623655 (Version 1)
Quarter: 2024Q1

REPORT INFORMATION
  Report Type: Spontaneous
  Country: US (occurrence: None)
  Receive Date: 20240312
  Receipt Date: 20240312
  Transmission Date: 20240410
  Serious: Yes (Hospitalization, Other)
  Sender: FDA-Public Use
  Company Number: None

PATIENT
  Age: 43 Year
  Sex: Female
  Weight: 81.9 kg

DRUGS (2)
  1. AMBRISENTAN [Suspect]
     Active Substance: AMBRISENTAN
     Indication: Pulmonary arterial hypertension
     Dosage: FREQUENCY : DAILY;?
     Route: 048
     Dates: start: 20170714
  2. DILTIAZEM [Suspect]
     Active Substance: DILTIAZEM

REACTIONS (5)
  - Accidental overdose [None]
  - Overdose [None]
  - Dizziness [None]
  - Palpitations [None]
  - Chest discomfort [None]

NARRATIVE: CASE EVENT DATE: 20240312
